FAERS Safety Report 5142534-0 (Version None)
Quarter: 2006Q4

REPORT INFORMATION
  Report Type: 
  Country: None (occurrence: None)
  Receive Date: 20061102
  Receipt Date: 20060724
  Transmission Date: 20070319
  Serious: Yes (Disabling)
  Sender: FDA-Public Use
  Company Number: US-SANOFI-SYNTHELABO-A03200604785

PATIENT
  Sex: Female

DRUGS (3)
  1. AMBIEN [Suspect]
     Indication: DRUG USE FOR UNKNOWN INDICATION
     Dosage: UNK
     Route: 048
  2. ANALGESICS [Suspect]
     Indication: DRUG USE FOR UNKNOWN INDICATION
     Dosage: UNK
     Route: 065
  3. ANTIDEPRESSANTS [Suspect]
     Indication: DRUG USE FOR UNKNOWN INDICATION
     Dosage: UNK
     Route: 065

REACTIONS (16)
  - DEAFNESS [None]
  - GASTRIC DISORDER [None]
  - GOITRE [None]
  - HEADACHE [None]
  - HEPATOCELLULAR DAMAGE [None]
  - HYPERHIDROSIS [None]
  - INSOMNIA [None]
  - MOTOR DYSFUNCTION [None]
  - NAUSEA [None]
  - NERVOUS SYSTEM DISORDER [None]
  - PAIN IN EXTREMITY [None]
  - PARALYSIS [None]
  - POISONING [None]
  - RENAL DISORDER [None]
  - SKIN ODOUR ABNORMAL [None]
  - VISUAL DISTURBANCE [None]
